FAERS Safety Report 5365661-1 (Version None)
Quarter: 2007Q2

REPORT INFORMATION
  Report Type: 
  Country: None (occurrence: None)
  Receive Date: 20070621
  Receipt Date: 20070608
  Transmission Date: 20071010
  Serious: Yes (Hospitalization)
  Sender: FDA-Public Use
  Company Number: FR-ELI_LILLY_AND_COMPANY-FR200612003672

PATIENT
  Age: 65 Year
  Sex: Female
  Weight: 70 kg

DRUGS (6)
  1. FORTEO [Suspect]
     Indication: OSTEOPOROSIS
     Dosage: 20 UG, DAILY (1/D)
     Route: 058
     Dates: start: 20060130
  2. CELIPROLOL [Concomitant]
     Indication: HYPERTENSION
  3. LIPANTHYL [Concomitant]
     Indication: HYPERCHOLESTEROLAEMIA
  4. PLAVIX [Concomitant]
     Indication: CARDIAC DISORDER
  5. ZOCOR [Concomitant]
     Route: 048
  6. LOPRIL /FRA/ [Concomitant]
     Route: 048

REACTIONS (1)
  - BREAST CANCER [None]
